FAERS Safety Report 5059838-2 (Version None)
Quarter: 2006Q3

REPORT INFORMATION
  Report Type: 
  Country: None (occurrence: None)
  Receive Date: 20060724
  Receipt Date: 20060714
  Transmission Date: 20061208
  Serious: Yes (Other)
  Sender: FDA-Public Use
  Company Number: 2006UW14528

PATIENT
  Age: 44 Year
  Sex: Male
  Weight: 77.3 kg

DRUGS (2)
  1. IRESSA [Suspect]
     Indication: NEOPLASM MALIGNANT
     Route: 048
     Dates: start: 20060621, end: 20060630
  2. VITAMINS [Concomitant]

REACTIONS (5)
  - BLINDNESS TRANSIENT [None]
  - BLINDNESS UNILATERAL [None]
  - NIGHT SWEATS [None]
  - PYREXIA [None]
  - RETINAL ARTERY OCCLUSION [None]
